FAERS Safety Report 17097233 (Version 1)
Quarter: 2019Q4

REPORT INFORMATION
  Report Type: Spontaneous
  Country: US (occurrence: US)
  Receive Date: 20191104
  Receipt Date: 20191104
  Transmission Date: 20200122
  Serious: No
  Sender: FDA-Public Use
  Company Number: None

PATIENT

DRUGS (2)
  1. RE BOTANICALS HEMP 15 FROM ANAVII [Suspect]
     Active Substance: CANNABIDIOL\CANNABIS SATIVA SEED OIL
     Indication: ARTHRITIS
     Dosage: ?          QUANTITY:15 MG MILLIGRAM(S);?30 DOSE BOTTLE W/DROPPER?
     Route: 048
  2. XANAX [Suspect]
     Active Substance: ALPRAZOLAM

REACTIONS (3)
  - Anxiety [None]
  - Tinnitus [None]
  - Product formulation issue [None]

NARRATIVE: CASE EVENT DATE: 20190912
